FAERS Safety Report 8791947 (Version 2)
Quarter: 2012Q4

REPORT INFORMATION
  Report Type: 
  Country: IT (occurrence: IT)
  Receive Date: 20120918
  Receipt Date: 20121121
  Transmission Date: 20130627
  Serious: Yes (Hospitalization)
  Sender: FDA-Public Use
  Company Number: IT-PFIZER INC-2012229350

PATIENT
  Age: 79 Year
  Sex: Female

DRUGS (1)
  1. TAZOCIN [Suspect]
     Dosage: 1 dosage unit, daily
     Dates: start: 20120515, end: 20120518

REACTIONS (1)
  - Drug eruption [Recovering/Resolving]
